FAERS Safety Report 14340198 (Version 4)
Quarter: 2018Q2

REPORT INFORMATION
  Report Type: Report from Study
  Country: None (occurrence: BE)
  Receive Date: 20171231
  Receipt Date: 20180604
  Transmission Date: 20180711
  Serious: Yes (Hospitalization, Other)
  Sender: FDA-Public Use
  Company Number: BE-ABBVIE-17P-013-1909262-00

PATIENT
  Sex: Male

DRUGS (10)
  1. DUODOPA [Suspect]
     Active Substance: CARBIDOPA\LEVODOPA
     Indication: PARKINSON^S DISEASE
     Dosage: AM=3ML??CD=1.5ML/HR DURING 16HRS ??ED=1ML
     Route: 050
     Dates: start: 20150309, end: 20150313
  2. PLAVIX [Concomitant]
     Active Substance: CLOPIDOGREL BISULFATE
     Indication: PRODUCT USED FOR UNKNOWN INDICATION
  3. DUODOPA [Suspect]
     Active Substance: CARBIDOPA\LEVODOPA
     Dosage: AM=3ML??CD=1.9ML/HR DURING 16HRS ??ED=2ML??ND=1.3ML/HR DURING 8HRS
     Route: 050
     Dates: start: 20160526, end: 20180517
  4. DUODOPA [Suspect]
     Active Substance: CARBIDOPA\LEVODOPA
     Dosage: MD=3ML?CD=2.2ML/HR DURING 16HRS?ED=1.3ML?ND=1.3ML/HR DURING 8HRS
     Route: 050
     Dates: start: 20180517
  5. DUODOPA [Suspect]
     Active Substance: CARBIDOPA\LEVODOPA
     Dosage: DOSES CONTINUOUSLY MONITORED AND ADAPTED
     Route: 050
     Dates: start: 20150313, end: 20160526
  6. CRESTOR [Concomitant]
     Active Substance: ROSUVASTATIN CALCIUM
     Indication: PRODUCT USED FOR UNKNOWN INDICATION
  7. NOBITEN [Concomitant]
     Active Substance: NEBIVOLOL
     Indication: PRODUCT USED FOR UNKNOWN INDICATION
  8. PROLOPA 125 [Concomitant]
     Indication: PRODUCT USED FOR UNKNOWN INDICATION
     Dosage: FORM STRENGTH: 100MG/25MG??UNIT DOSE : 0.25 TABLET
  9. PROLOPA 125 [Concomitant]
     Dosage: FORM STRENGTH: 100MG/25MG.FREQUENCY 5TIMES/DAY AS RESCUE MEDICATION
  10. METATOP [Concomitant]
     Active Substance: LORMETAZEPAM
     Indication: PRODUCT USED FOR UNKNOWN INDICATION

REACTIONS (6)
  - Knee operation [Unknown]
  - Prostatic disorder [Unknown]
  - General physical health deterioration [Not Recovered/Not Resolved]
  - Dyskinesia [Unknown]
  - Aortic aneurysm [Recovered/Resolved]
  - Cognitive disorder [Not Recovered/Not Resolved]

NARRATIVE: CASE EVENT DATE: 2017
